FAERS Safety Report 12108579 (Version 1)
Quarter: 2016Q1

REPORT INFORMATION
  Report Type: Spontaneous
  Country: US (occurrence: US)
  Receive Date: 20160224
  Receipt Date: 20160224
  Transmission Date: 20160526
  Serious: No
  Sender: FDA-Public Use
  Company Number: US-BIOGEN-2016BI00191238

PATIENT

DRUGS (1)
  1. TECFIDERA [Suspect]
     Active Substance: DIMETHYL FUMARATE
     Indication: MULTIPLE SCLEROSIS

REACTIONS (8)
  - Muscle spasms [Unknown]
  - Fatigue [Unknown]
  - Spinal pain [Unknown]
  - Joint stiffness [Unknown]
  - Neuralgia [Unknown]
  - Head discomfort [Unknown]
  - Discomfort [Unknown]
  - Pain in extremity [Unknown]
